FAERS Safety Report 13369323 (Version 1)
Quarter: 2017Q1

REPORT INFORMATION
  Report Type: Spontaneous
  Country: US (occurrence: US)
  Receive Date: 20170324
  Receipt Date: 20170324
  Transmission Date: 20170429
  Serious: Yes (Other)
  Sender: FDA-Public Use
  Company Number: None

PATIENT
  Age: 45 Year
  Sex: Female
  Weight: 90 kg

DRUGS (1)
  1. COMPLETE CARE TARTAR CONTROL PLUS WHITENING BAKING SODA AND PEROXIDE [Suspect]
     Active Substance: SODIUM FLUORIDE
     Indication: DENTAL CARE
     Route: 048
     Dates: start: 20170102, end: 20170223

REACTIONS (1)
  - Chemical injury [None]

NARRATIVE: CASE EVENT DATE: 20170224
